FAERS Safety Report 8532704 (Version 3)
Quarter: 2012Q4

REPORT INFORMATION
  Report Type: 
  Country: US (occurrence: US)
  Receive Date: 20120426
  Receipt Date: 20121018
  Transmission Date: 20130627
  Serious: Yes (Hospitalization)
  Sender: FDA-Public Use
  Company Number: US-MILLENNIUM PHARMACEUTICALS, INC.-2012-02649

PATIENT
  Age: 51 Year
  Sex: Male
  Weight: 226.76 kg

DRUGS (3)
  1. VELCADE [Suspect]
     Indication: MULTIPLE MYELOMA
     Dosage: 3.5 mg, 1/week
     Route: 040
     Dates: start: 20110329, end: 20111213
  2. CYTOXAN [Suspect]
     Indication: MULTIPLE MYELOMA
     Dosage: 900 mg, 1/week
     Route: 042
     Dates: start: 20110329, end: 20111213
  3. DECADRON                           /00016001/ [Suspect]
     Indication: MULTIPLE MYELOMA
     Dosage: 40 mg, 1/week
     Route: 048
     Dates: start: 20110329, end: 20111213

REACTIONS (7)
  - Fall [Recovered/Resolved]
  - Peroneal nerve palsy [Recovered/Resolved]
  - Osteoarthritis [Not Recovered/Not Resolved]
  - Obesity [Not Recovered/Not Resolved]
  - Musculoskeletal pain [Recovered/Resolved]
  - Paraesthesia [Unknown]
  - Neuropathy peripheral [Recovered/Resolved]
